FAERS Safety Report 15456542 (Version 1)
Quarter: 2018Q4

REPORT INFORMATION
  Report Type: Spontaneous
  Country: GB (occurrence: GB)
  Receive Date: 20181002
  Receipt Date: 20181002
  Transmission Date: 20190204
  Serious: Yes (Other)
  Sender: FDA-Public Use
  Company Number: GB-PFIZER INC-2018392205

PATIENT
  Age: 53 Year

DRUGS (12)
  1. METFORMIN [Concomitant]
     Active Substance: METFORMIN HYDROCHLORIDE
     Dosage: 2000 MG, 1X/DAY
  2. INSULIN DETEMIR [Concomitant]
     Active Substance: INSULIN DETEMIR
     Dosage: 80 IU, 1X/DAY
  3. DOCUSATE [Concomitant]
     Active Substance: DOCUSATE
     Dosage: 400 MG, 1X/DAY
  4. CIPROFLOXACIN. [Concomitant]
     Active Substance: CIPROFLOXACIN
     Dosage: 1000 MG, 1X/DAY UNTIL 23APR2018
  5. CIPROFLOXACIN. [Suspect]
     Active Substance: CIPROFLOXACIN
     Dosage: UNK
  6. ATORVASTATIN [Concomitant]
     Active Substance: ATORVASTATIN
     Dosage: 40 MG, 1X/DAY
  7. BEZAFIBRATE [Concomitant]
     Active Substance: BEZAFIBRATE
     Dosage: 400 MG, 1X/DAY (MODIFIED-RELEASE)
  8. RIFAMPICIN [Suspect]
     Active Substance: RIFAMPIN
     Dosage: 300 MG, TWICE A DAY (BD) UNTIL 23APR2018
  9. APIDRA [Concomitant]
     Active Substance: INSULIN GLULISINE
     Dosage: 25-30 UNITS THREE TIMES DAILY
  10. CANDESARTAN. [Concomitant]
     Active Substance: CANDESARTAN
     Dosage: 16 MG, 1X/DAY (HELD DUE TO ACUTE KIDNEY INJURY)
  11. AMLODIPINE [Concomitant]
     Active Substance: AMLODIPINE BESYLATE
     Dosage: 5 MG, 1X/DAY
  12. CODEINE [Concomitant]
     Active Substance: CODEINE
     Dosage: 60MG FOUR TIMES A DAY AS NECESSARY

REACTIONS (3)
  - Sepsis [Unknown]
  - Acute kidney injury [Recovered/Resolved]
  - Malaise [Unknown]
